FAERS Safety Report 18373609 (Version 1)
Quarter: 2020Q4

REPORT INFORMATION
  Report Type: Spontaneous
  Country: US (occurrence: US)
  Receive Date: 20201013
  Receipt Date: 20201013
  Transmission Date: 20210114
  Serious: No
  Sender: FDA-Public Use
  Company Number: US-CELLTRION INC.-2019US027164

PATIENT

DRUGS (1)
  1. INFLECTRA [Suspect]
     Active Substance: INFLIXIMAB-DYYB
     Indication: CROHN^S DISEASE
     Dosage: 5MG/KG, ADMINISTERED INTRAVENOUSLY EVERY 6 WEEKS
     Route: 042
     Dates: start: 20191126

REACTIONS (4)
  - Unevaluable event [Unknown]
  - Unevaluable event [Unknown]
  - No adverse event [Unknown]
  - Weight decreased [Unknown]

NARRATIVE: CASE EVENT DATE: 20191126
